FAERS Safety Report 13025163 (Version 1)
Quarter: 2016Q4

REPORT INFORMATION
  Report Type: Spontaneous
  Country: FR (occurrence: FR)
  Receive Date: 20161214
  Receipt Date: 20161214
  Transmission Date: 20170207
  Serious: Yes (Hospitalization, Other)
  Sender: FDA-Public Use
  Company Number: FR-BAXTER-2016BAX061300

PATIENT
  Age: 62 Year
  Sex: Female

DRUGS (7)
  1. DOXORUBICIN [Suspect]
     Active Substance: DOXORUBICIN
     Indication: LEIOMYOSARCOMA METASTATIC
     Dosage: THIRD COURSE
     Route: 065
     Dates: start: 20161029, end: 20161029
  2. METHYLPREDNISOLONE. [Suspect]
     Active Substance: METHYLPREDNISOLONE
     Indication: PRODUCT USED FOR UNKNOWN INDICATION
     Route: 065
     Dates: start: 20161029, end: 20161031
  3. HOLOXAN 2000 MG, POUDRE POUR USAGE PARENT?RAL [Suspect]
     Active Substance: IFOSFAMIDE
     Indication: LEIOMYOSARCOMA METASTATIC
     Dosage: THIRD COURSE
     Route: 042
     Dates: start: 20161029, end: 20161031
  4. UROMITEXAN 5 G/50 ML, SOLUTION INJECTABLE POUR PERFUSION EN FLACON [Suspect]
     Active Substance: MESNA
     Indication: CHEMOTHERAPY UROTHELIAL TOXICITY ATTENUATION
     Route: 042
     Dates: start: 20161029, end: 20161031
  5. ZOPHREN [Suspect]
     Active Substance: ONDANSETRON
     Indication: PRODUCT USED FOR UNKNOWN INDICATION
     Route: 065
     Dates: start: 20161029, end: 20161031
  6. LARGACTIL [Suspect]
     Active Substance: CHLORPROMAZINE
     Indication: NAUSEA
     Dosage: STRENGTH: 25 MG/5 ML, SLOW IV DURING DAY
     Route: 042
     Dates: start: 20161030, end: 20161031
  7. EMEND [Suspect]
     Active Substance: APREPITANT
     Indication: NAUSEA
     Route: 048
     Dates: start: 20161029, end: 20161101

REACTIONS (5)
  - Anaemia [Unknown]
  - Hypoglycaemia [Unknown]
  - Vertigo [Recovering/Resolving]
  - Fall [Recovered/Resolved]
  - Encephalopathy [Recovered/Resolved]

NARRATIVE: CASE EVENT DATE: 20161031
